FAERS Safety Report 7805373-5 (Version None)
Quarter: 2011Q4

REPORT INFORMATION
  Report Type: 
  Country: None (occurrence: None)
  Receive Date: 20111010
  Receipt Date: 20111004
  Transmission Date: 20120403
  Serious: Yes (Death)
  Sender: FDA-Public Use
  Company Number: DE-ASTRAZENECA-2011SE59445

PATIENT

DRUGS (2)
  1. COCAINE [Suspect]
  2. LIDOCAINE [Suspect]

REACTIONS (3)
  - INTENTIONAL DRUG MISUSE [None]
  - DRUG ABUSE [None]
  - TOXICITY TO VARIOUS AGENTS [None]
